FAERS Safety Report 9055529 (Version 1)
Quarter: 2013Q1

REPORT INFORMATION
  Report Type: Spontaneous
  Country: FR (occurrence: FR)
  Receive Date: 20130206
  Receipt Date: 20130206
  Transmission Date: 20140127
  Serious: Yes (Hospitalization)
  Sender: FDA-Public Use
  Company Number: FR-GLAXOSMITHKLINE-B0862832A

PATIENT
  Age: 81 None
  Sex: Female

DRUGS (5)
  1. ARIXTRA [Suspect]
     Indication: THROMBOSIS
     Dosage: 7.5MG PER DAY
     Route: 058
     Dates: start: 20121018, end: 20121022
  2. KARDEGIC [Suspect]
     Indication: PRODUCT USED FOR UNKNOWN INDICATION
     Dosage: 75MG PER DAY
     Route: 048
     Dates: end: 20121022
  3. AMLOR [Concomitant]
  4. ATENOLOL [Concomitant]
  5. LOW MOLECULAR WEIGHT HEPARIN [Concomitant]

REACTIONS (4)
  - Gastric ulcer haemorrhage [Recovered/Resolved]
  - Malaise [Unknown]
  - Melaena [Unknown]
  - Lung disorder [Unknown]
